FAERS Safety Report 5347277-6 (Version None)
Quarter: 2007Q2

REPORT INFORMATION
  Report Type: 
  Country: None (occurrence: None)
  Receive Date: 20070606
  Receipt Date: 20070529
  Transmission Date: 20071010
  Serious: Yes (Life-Threatening, Hospitalization)
  Sender: FDA-Public Use
  Company Number: PHEH2007US03966

PATIENT
  Age: 70 Year
  Sex: Female

DRUGS (17)
  1. ZELNORM [Suspect]
     Indication: CONSTIPATION
     Dosage: 6 MG, BID
     Dates: start: 20060701, end: 20070330
  2. HUMULIN N [Concomitant]
  3. ACETYLSALICYLIC ACID SRT [Concomitant]
     Dosage: 81 MG, QD
  4. K-DUR 10 [Concomitant]
     Dosage: 20 MEQ, QD
  5. FUROSEMIDE [Concomitant]
     Dosage: 20 MG, QD
  6. ISOSORBIDE DINITRATE [Concomitant]
     Dosage: 1/2 20 MG QAM AND QPM
  7. RELAFEN [Concomitant]
     Dosage: 1/2 500 MG QAM AND QPM
  8. GLYCERYL TRINITRATE [Concomitant]
     Dosage: UNK, PRN
  9. GEMFIBROZIL [Concomitant]
     Dosage: 600 MG, BID
  10. PREVACID [Concomitant]
     Dosage: 30 MG, QD
  11. CARAFATE [Concomitant]
     Dosage: UNK, QID
  12. SUCRALFATE [Concomitant]
     Dosage: UNK, QID
  13. CITALOPRAM HYDROBROMIDE [Concomitant]
     Dosage: 20 MG, QD
  14. WELCHOL [Concomitant]
  15. ALLEGRA [Concomitant]
     Dosage: 180 MG, QD
  16. DOXAZOSIN MESYLATE [Concomitant]
     Dosage: 2 MG, QD
  17. MICARDIS [Concomitant]
     Dosage: 40 UNK, QD
     Dates: start: 20061017

REACTIONS (5)
  - ACUTE MYOCARDIAL INFARCTION [None]
  - ANGINA PECTORIS [None]
  - CATHETERISATION CARDIAC [None]
  - FATIGUE [None]
  - INFLUENZA [None]
